FAERS Safety Report 25052170 (Version 2)
Quarter: 2025Q1

REPORT INFORMATION
  Report Type: Spontaneous
  Country: US (occurrence: US)
  Receive Date: 20250307
  Receipt Date: 20250327
  Transmission Date: 20250409
  Serious: No
  Sender: PFIZER
  Company Number: US-PFIZER INC-PV202500027395

PATIENT
  Age: 73 Year
  Sex: Female

DRUGS (5)
  1. IBRANCE [Suspect]
     Active Substance: PALBOCICLIB
  2. ALEVE [Concomitant]
     Active Substance: NAPROXEN SODIUM
     Indication: Neck pain
  3. ALEVE [Concomitant]
     Active Substance: NAPROXEN SODIUM
     Indication: Arthritis
  4. SALONPAS (MENTHOL\METHYL SALICYLATE) [Concomitant]
     Active Substance: MENTHOL\METHYL SALICYLATE
     Indication: Neck pain
  5. SALONPAS (MENTHOL\METHYL SALICYLATE) [Concomitant]
     Active Substance: MENTHOL\METHYL SALICYLATE
     Indication: Arthritis

REACTIONS (2)
  - Dyspepsia [Unknown]
  - Fatigue [Unknown]
